FAERS Safety Report 6941027-5 (Version None)
Quarter: 2010Q3

REPORT INFORMATION
  Report Type: 
  Country: None (occurrence: None)
  Receive Date: 20100825
  Receipt Date: 20100817
  Transmission Date: 20110219
  Serious: Yes (Hospitalization)
  Sender: FDA-Public Use
  Company Number: B0670468A

PATIENT
  Sex: Female
  Weight: 43 kg

DRUGS (11)
  1. TYKERB [Suspect]
     Indication: BREAST CANCER
     Dosage: 1250MG PER DAY
     Route: 048
     Dates: start: 20090804, end: 20100331
  2. XELODA [Suspect]
     Dosage: 2400MG PER DAY
     Route: 048
     Dates: start: 20090804, end: 20090817
  3. XELODA [Suspect]
     Dosage: 1800MG PER DAY
     Route: 048
     Dates: start: 20090827, end: 20100317
  4. LENDORMIN [Concomitant]
     Indication: INSOMNIA
     Route: 048
  5. ASPIRIN [Concomitant]
     Indication: ANGINA PECTORIS
     Route: 048
  6. CONIEL [Concomitant]
     Indication: HYPERTENSION
     Route: 048
  7. ALFAROL [Concomitant]
     Indication: OSTEOPOROSIS
     Route: 048
  8. UNKNOWN DRUG [Concomitant]
     Indication: CONSTIPATION
     Route: 062
  9. BORRAZA-G [Concomitant]
     Route: 062
  10. SELTOUCH [Concomitant]
     Indication: BACK PAIN
     Route: 062
  11. TAKEPRON [Concomitant]
     Route: 048
     Dates: start: 20100106

REACTIONS (9)
  - ALOPECIA [None]
  - CONDITION AGGRAVATED [None]
  - DECREASED APPETITE [None]
  - FATIGUE [None]
  - NAUSEA [None]
  - NEUROTOXICITY [None]
  - PALMAR-PLANTAR ERYTHRODYSAESTHESIA SYNDROME [None]
  - PYREXIA [None]
  - RASH [None]
